FAERS Safety Report 13183743 (Version 1)
Quarter: 2017Q1

REPORT INFORMATION
  Report Type: Report from Study
  Country: US (occurrence: US)
  Receive Date: 20170203
  Receipt Date: 20170203
  Transmission Date: 20170428
  Serious: Yes (Other)
  Sender: FDA-Public Use
  Company Number: US-SA-2017SA014717

PATIENT
  Age: 43 Year
  Sex: Male

DRUGS (4)
  1. ZIV-AFLIBERCEPT [Suspect]
     Active Substance: ZIV-AFLIBERCEPT
     Indication: COLORECTAL CANCER METASTATIC
     Dosage: INFUSION
     Route: 065
  2. LEUCOVORIN. [Suspect]
     Active Substance: LEUCOVORIN
     Indication: COLORECTAL CANCER METASTATIC
     Route: 065
  3. OXALIPLATIN. [Suspect]
     Active Substance: OXALIPLATIN
     Indication: COLORECTAL CANCER METASTATIC
     Route: 065
  4. FLUOROURACIL. [Suspect]
     Active Substance: FLUOROURACIL
     Indication: COLORECTAL CANCER METASTATIC
     Route: 065

REACTIONS (4)
  - Osteonecrosis of jaw [Recovered/Resolved with Sequelae]
  - Exposed bone in jaw [Recovered/Resolved with Sequelae]
  - Gingival bleeding [Recovered/Resolved with Sequelae]
  - Gingival erythema [Recovered/Resolved with Sequelae]
